FAERS Safety Report 14893314 (Version 1)
Quarter: 2018Q2

REPORT INFORMATION
  Report Type: Spontaneous
  Country: SG (occurrence: SG)
  Receive Date: 20180514
  Receipt Date: 20180514
  Transmission Date: 20180711
  Serious: Yes (Other)
  Sender: FDA-Public Use
  Company Number: SG-AMGEN-SGPSP2018062899

PATIENT
  Age: 72 Year
  Sex: Male

DRUGS (4)
  1. CALCIUM GLUCONATE. [Concomitant]
     Active Substance: CALCIUM GLUCONATE
     Dosage: UNK
  2. PROLIA [Suspect]
     Active Substance: DENOSUMAB
     Indication: HYPERCALCAEMIA
     Route: 058
  3. CALCIUM [Concomitant]
     Active Substance: CALCIUM
     Route: 048
  4. VITAMIN D [Concomitant]
     Active Substance: CHOLECALCIFEROL
     Dosage: UNK

REACTIONS (4)
  - Renal impairment [Recovering/Resolving]
  - Blood parathyroid hormone increased [Unknown]
  - Compression fracture [Unknown]
  - Off label use [Unknown]
